FAERS Safety Report 5134070-2 (Version None)
Quarter: 2006Q4

REPORT INFORMATION
  Report Type: 
  Country: None (occurrence: None)
  Receive Date: 20061019
  Receipt Date: 20061009
  Transmission Date: 20070319
  Serious: Yes (Other)
  Sender: FDA-Public Use
  Company Number: 2006123957

PATIENT
  Age: 68 Year
  Sex: Male
  Weight: 82.6 kg

DRUGS (4)
  1. DOXAZOSIN (DOXAZOSIN) [Suspect]
     Dosage: 4 MG (4 MG, 1 IN 1 D)
  2. VERAPAMIL HYDROCHLORIDE [Suspect]
     Dosage: 1 DOSE FORM (1 IN 1 D)
  3. SEATONE (AMINO ACID NOS, MINERALS NOS, VITAMINS NOS) [Suspect]
     Dosage: ORAL
     Route: 048
     Dates: start: 20060909, end: 20060909
  4. ASPIRIN [Concomitant]

REACTIONS (2)
  - DRUG INTERACTION [None]
  - HEADACHE [None]
